FAERS Safety Report 20868752 (Version 1)
Quarter: 2022Q2

REPORT INFORMATION
  Report Type: Spontaneous
  Country: US (occurrence: US)
  Receive Date: 20220524
  Receipt Date: 20220524
  Transmission Date: 20220721
  Serious: No
  Sender: FDA-Public Use
  Company Number: US-PFIZER INC-202200673637

PATIENT
  Age: 42 Year
  Sex: Female

DRUGS (2)
  1. VIAGRA [Suspect]
     Active Substance: SILDENAFIL CITRATE
     Indication: Raynaud^s phenomenon
     Dosage: 100 MG, DAILY (50MG AT AM, 50 MG AT PM)
  2. VIAGRA [Suspect]
     Active Substance: SILDENAFIL CITRATE
     Indication: Scleroderma

REACTIONS (4)
  - Flushing [Unknown]
  - Feeling hot [Unknown]
  - Drug effective for unapproved indication [Unknown]
  - Off label use [Unknown]

NARRATIVE: CASE EVENT DATE: 19980501
